FAERS Safety Report 8283596-1 (Version None)
Quarter: 2012Q2

REPORT INFORMATION
  Report Type: 
  Country: None (occurrence: None)
  Receive Date: 20120413
  Receipt Date: 20120405
  Transmission Date: 20120825
  Serious: Yes (Death, Other)
  Sender: FDA-Public Use
  Company Number: IE-ABBOTT-12P-229-0924117-00

PATIENT
  Age: 74 Year
  Sex: Male

DRUGS (12)
  1. XANAX [Concomitant]
     Indication: DEPRESSED MOOD
     Route: 065
  2. CASODEX [Suspect]
     Indication: PROSTATE CANCER
     Route: 048
  3. XANAX [Concomitant]
     Indication: PAIN
  4. VIMOVO [Concomitant]
     Indication: PAIN
     Route: 065
  5. RADIOTHERAPY [Concomitant]
     Indication: PROSTATE CANCER
     Route: 065
  6. DURAGESIC-100 [Concomitant]
     Indication: ANALGESIC THERAPY
  7. LEUPROLIDE ACETATE [Suspect]
     Indication: PROSTATE CANCER
     Route: 050
     Dates: start: 20110901
  8. XANAX [Concomitant]
     Indication: MOOD SWINGS
  9. BISOPROLOL FUMARATE [Concomitant]
     Indication: PRODUCT USED FOR UNKNOWN INDICATION
     Route: 065
  10. LIDOCAINE [Concomitant]
     Indication: PAIN
  11. NEXIUM [Concomitant]
     Indication: PRODUCT USED FOR UNKNOWN INDICATION
     Route: 065
  12. VALDOXAN [Concomitant]
     Indication: DEPRESSION
     Route: 065

REACTIONS (4)
  - SUICIDAL IDEATION [None]
  - DEPRESSED MOOD [None]
  - COMPLETED SUICIDE [None]
  - MOOD SWINGS [None]
